FAERS Safety Report 13536331 (Version 6)
Quarter: 2018Q3

REPORT INFORMATION
  Report Type: Spontaneous
  Country: US (occurrence: US)
  Receive Date: 20170511
  Receipt Date: 20180726
  Transmission Date: 20181010
  Serious: No
  Sender: FDA-Public Use
  Company Number: US-PFIZER INC-2017205288

PATIENT
  Age: 34 Year
  Sex: Female
  Weight: 79.82 kg

DRUGS (1)
  1. LYRICA [Suspect]
     Active Substance: PREGABALIN
     Indication: NEUROPATHY PERIPHERAL
     Dosage: 300 MG, TWICE DAILY (MORNING DOSE AT 7?8AM)
     Route: 048
     Dates: start: 2017, end: 2017

REACTIONS (4)
  - Hypersensitivity [Recovered/Resolved]
  - Foreign body in respiratory tract [Unknown]
  - Drug effect incomplete [Unknown]
  - Dysphagia [Unknown]

NARRATIVE: CASE EVENT DATE: 2017
